FAERS Safety Report 18502208 (Version 2)
Quarter: 2020Q4

REPORT INFORMATION
  Report Type: Report from Study
  Country: SK (occurrence: SK)
  Receive Date: 20201113
  Receipt Date: 20201202
  Transmission Date: 20210114
  Serious: Yes (Hospitalization)
  Sender: FDA-Public Use
  Company Number: SK-ROCHE-1252661

PATIENT
  Age: 37 Year
  Sex: Male
  Weight: 70 kg

DRUGS (132)
  1. KALDYUM [Concomitant]
     Active Substance: POTASSIUM CHLORIDE
     Dates: start: 20180831, end: 20180904
  2. OCRELIZUMAB. [Suspect]
     Active Substance: OCRELIZUMAB
     Indication: RELAPSING-REMITTING MULTIPLE SCLEROSIS
     Dosage: OLE-WEEK 0
     Route: 042
     Dates: start: 20131104, end: 20131104
  3. OCRELIZUMAB. [Suspect]
     Active Substance: OCRELIZUMAB
     Dosage: OLE-WEEK 24
     Route: 042
     Dates: start: 20140423, end: 20140423
  4. OCRELIZUMAB. [Suspect]
     Active Substance: OCRELIZUMAB
     Dosage: OLE-WEEK 288
     Route: 042
     Dates: start: 20190510, end: 20190510
  5. BISULEPIN [Concomitant]
     Active Substance: BISULEPIN
     Dosage: PRE-MEDICATION. WEEK 24
     Dates: start: 20120521
  6. PARACETAMOL [Concomitant]
     Active Substance: ACETAMINOPHEN
     Dosage: OLE-WEEK 216
     Dates: start: 20171222
  7. PARACETAMOL [Concomitant]
     Active Substance: ACETAMINOPHEN
     Dates: start: 20170111, end: 20170403
  8. PREDNISONE. [Concomitant]
     Active Substance: PREDNISONE
     Dates: start: 20110211, end: 20110213
  9. PREDNISONE. [Concomitant]
     Active Substance: PREDNISONE
     Dates: start: 20110622, end: 20110623
  10. PREDNISONE. [Concomitant]
     Active Substance: PREDNISONE
     Dates: start: 20110626, end: 20110627
  11. PREDNISONE. [Concomitant]
     Active Substance: PREDNISONE
     Dates: start: 20111008, end: 20111008
  12. PREDNISONE. [Concomitant]
     Active Substance: PREDNISONE
     Dates: start: 20111010, end: 20111010
  13. QUAMATEL [Concomitant]
     Active Substance: FAMOTIDINE
     Dates: start: 20120717, end: 20120723
  14. AESCIN [Concomitant]
     Dates: start: 20150604, end: 20150609
  15. ALMIRAL [Concomitant]
     Active Substance: DICLOFENAC SODIUM
     Dates: start: 20170322, end: 20170401
  16. OMEPRAZOLE. [Concomitant]
     Active Substance: OMEPRAZOLE
     Dates: start: 20170913, end: 20170917
  17. SOLU-MEDROL [Concomitant]
     Active Substance: METHYLPREDNISOLONE SODIUM SUCCINATE
     Dates: start: 20130423, end: 20130427
  18. SOLU-MEDROL [Concomitant]
     Active Substance: METHYLPREDNISOLONE SODIUM SUCCINATE
     Dates: start: 20200702, end: 20200706
  19. OCRELIZUMAB. [Suspect]
     Active Substance: OCRELIZUMAB
     Dosage: OLE-WEEK 216
     Route: 042
     Dates: start: 20171222, end: 20171222
  20. OCRELIZUMAB. [Suspect]
     Active Substance: OCRELIZUMAB
     Dosage: OLE-WEEK 264
     Route: 042
     Dates: start: 20181126, end: 20181126
  21. BISULEPIN [Concomitant]
     Active Substance: BISULEPIN
     Dosage: PRE-MEDICATION.
     Dates: start: 20121105
  22. METHYLPREDNISOLONE. [Concomitant]
     Active Substance: METHYLPREDNISOLONE
     Dosage: SOLUMEDROL
     Dates: start: 20110204, end: 20110208
  23. PREDNISONE. [Concomitant]
     Active Substance: PREDNISONE
     Dates: start: 20110218, end: 20110219
  24. QUAMATEL [Concomitant]
     Active Substance: FAMOTIDINE
     Dates: start: 20180831, end: 20180904
  25. AESCIN [Concomitant]
     Indication: INTERVERTEBRAL DISC PROTRUSION
     Dates: start: 20141119, end: 20141127
  26. DIPROPHOS [Concomitant]
     Active Substance: BETAMETHASONE DIPROPIONATE\BETAMETHASONE SODIUM PHOSPHATE
     Dates: start: 20150511, end: 20150511
  27. AULIN [Concomitant]
     Active Substance: NIMESULIDE
     Indication: BACK PAIN
     Dates: start: 20140913, end: 20140916
  28. KALDYUM [Concomitant]
     Active Substance: POTASSIUM CHLORIDE
     Dates: start: 20170913, end: 20170917
  29. PLACEBO [Suspect]
     Active Substance: UNSPECIFIED INGREDIENT
     Route: 042
     Dates: start: 20120521, end: 20120521
  30. OCRELIZUMAB. [Suspect]
     Active Substance: OCRELIZUMAB
     Dosage: OLE-WEEK 168
     Route: 042
     Dates: start: 20170125, end: 20170125
  31. OCRELIZUMAB. [Suspect]
     Active Substance: OCRELIZUMAB
     Dosage: OLE-WEEK 240
     Route: 042
     Dates: start: 20180611, end: 20180611
  32. PREDNISONE. [Concomitant]
     Active Substance: PREDNISONE
     Dates: start: 20110220, end: 20110221
  33. QUAMATEL [Concomitant]
     Active Substance: FAMOTIDINE
     Dates: start: 20190625, end: 20190629
  34. KETONAL (SLOVAKIA) [Concomitant]
     Indication: INTERVERTEBRAL DISC PROTRUSION
     Dates: start: 20150511, end: 20180528
  35. LYRICA [Concomitant]
     Active Substance: PREGABALIN
     Dates: start: 20170322, end: 20170917
  36. TRAMADOL. [Concomitant]
     Active Substance: TRAMADOL
     Indication: BACK PAIN
     Dates: start: 20170111, end: 20170403
  37. ESCITIL [Concomitant]
     Indication: BACK PAIN
     Dates: start: 20170403, end: 20170417
  38. SOLU-MEDROL [Concomitant]
     Active Substance: METHYLPREDNISOLONE SODIUM SUCCINATE
     Dates: start: 20120717, end: 20120723
  39. SOLU-MEDROL [Concomitant]
     Active Substance: METHYLPREDNISOLONE SODIUM SUCCINATE
     Dates: start: 20160914, end: 20160918
  40. SOLU-MEDROL [Concomitant]
     Active Substance: METHYLPREDNISOLONE SODIUM SUCCINATE
     Dates: start: 20110204, end: 20110208
  41. KALDYUM [Concomitant]
     Active Substance: POTASSIUM CHLORIDE
     Dates: start: 20190625, end: 20190629
  42. KALDYUM [Concomitant]
     Active Substance: POTASSIUM CHLORIDE
     Dates: start: 20170327, end: 20170402
  43. RIVOTRIL [Concomitant]
     Active Substance: CLONAZEPAM
     Dates: start: 20190629
  44. BISULEPIN [Concomitant]
     Active Substance: BISULEPIN
     Dosage: PRE-MEDICATION.
     Dates: start: 20111206
  45. METHYLPREDNISOLONE. [Concomitant]
     Active Substance: METHYLPREDNISOLONE
     Dosage: PRE-MEDICATION.
     Dates: start: 20121105, end: 20121105
  46. METHYLPREDNISOLONE. [Concomitant]
     Active Substance: METHYLPREDNISOLONE
     Dosage: SOLUMEDROL
     Dates: start: 20111003, end: 20111007
  47. PREDNISONE. [Concomitant]
     Active Substance: PREDNISONE
     Dates: start: 20110209, end: 20110210
  48. PREDNISONE. [Concomitant]
     Active Substance: PREDNISONE
     Dates: start: 20110618, end: 20110618
  49. PREDNISONE. [Concomitant]
     Active Substance: PREDNISONE
     Dates: start: 20110619, end: 20110619
  50. PREDNISONE. [Concomitant]
     Active Substance: PREDNISONE
     Dates: start: 20110621, end: 20110621
  51. PREDNISONE. [Concomitant]
     Active Substance: PREDNISONE
     Dates: start: 20111011, end: 20111011
  52. HERPESIN [Concomitant]
     Active Substance: ACYCLOVIR
     Dates: start: 20110216, end: 20110315
  53. QUAMATEL [Concomitant]
     Active Substance: FAMOTIDINE
     Dates: start: 20170327, end: 20170402
  54. AFLAMIL [Concomitant]
     Active Substance: ACECLOFENAC
     Dates: start: 20150610, end: 20150625
  55. MARCAIN [Concomitant]
     Active Substance: BUPIVACAINE HYDROCHLORIDE
     Indication: INTERVERTEBRAL DISC PROTRUSION
     Dates: start: 20150511, end: 20150511
  56. ALMIRAL [Concomitant]
     Active Substance: DICLOFENAC SODIUM
     Dates: start: 20140929, end: 20140929
  57. LYRICA [Concomitant]
     Active Substance: PREGABALIN
     Dates: start: 20170918, end: 20190629
  58. ESCITIL [Concomitant]
     Dates: start: 20170417
  59. SOLU-MEDROL [Concomitant]
     Active Substance: METHYLPREDNISOLONE SODIUM SUCCINATE
     Dates: start: 20180831, end: 20180904
  60. KALDYUM [Concomitant]
     Active Substance: POTASSIUM CHLORIDE
     Dates: start: 20200702, end: 20200706
  61. CYANOCOBALAMIN. [Concomitant]
     Active Substance: CYANOCOBALAMIN
     Dates: start: 20170322, end: 20170403
  62. PLACEBO [Suspect]
     Active Substance: UNSPECIFIED INGREDIENT
     Route: 042
     Dates: start: 20111219, end: 20111219
  63. OCRELIZUMAB. [Suspect]
     Active Substance: OCRELIZUMAB
     Dosage: OLE-WEEK 120
     Route: 042
     Dates: start: 20160304, end: 20160304
  64. PARACETAMOL [Concomitant]
     Active Substance: ACETAMINOPHEN
     Dates: start: 20111208, end: 20111208
  65. PARACETAMOL [Concomitant]
     Active Substance: ACETAMINOPHEN
     Dosage: OLE-WEEK 240
     Dates: start: 20180611
  66. METHYLPREDNISOLONE. [Concomitant]
     Active Substance: METHYLPREDNISOLONE
     Dosage: PRE-MEDICATION. BASELINE (WEEK 1)
     Dates: start: 20111206, end: 20111206
  67. METHYLPREDNISOLONE. [Concomitant]
     Active Substance: METHYLPREDNISOLONE
     Dosage: PRE-MEDICATION.
     Dates: start: 20130422, end: 20130422
  68. METHYLPREDNISOLONE. [Concomitant]
     Active Substance: METHYLPREDNISOLONE
     Dosage: SOLUMEDROL
     Dates: start: 20120717, end: 20120723
  69. METHYLPREDNISOLONE. [Concomitant]
     Active Substance: METHYLPREDNISOLONE
     Dates: start: 20130423, end: 20130427
  70. METHYLPREDNISOLONE. [Concomitant]
     Active Substance: METHYLPREDNISOLONE
     Dosage: OLE-WEEK 0 SUBSEQUENT DOSE ON 18/NOV/2013 OLE-WEEK 2, 23/APR/2014 OLE-WEEK 24, 06/OCT/2014 OLE-WEEK
     Dates: start: 20131104, end: 20131104
  71. PREDNISONE. [Concomitant]
     Active Substance: PREDNISONE
     Dates: start: 20110214, end: 20110215
  72. PREDNISONE. [Concomitant]
     Active Substance: PREDNISONE
     Dates: start: 20111013, end: 20111013
  73. PREDNISONE. [Concomitant]
     Active Substance: PREDNISONE
     Dates: start: 20111014, end: 20111014
  74. QUAMATEL [Concomitant]
     Active Substance: FAMOTIDINE
     Dates: start: 20140127, end: 20140131
  75. DITHIADEN [Concomitant]
     Active Substance: BISULEPIN
     Dosage: WEEK 48 NEXT SUBSEQUENT DOSE ON 23/APR/2013 WEEK 72, 04/NOV/2013 OLE-WEEK 0, 18/NOV/2013 OLE-WEEK 2,
     Dates: start: 20121105
  76. ALMIRAL [Concomitant]
     Active Substance: DICLOFENAC SODIUM
     Dates: start: 20140912, end: 20140912
  77. OMEPRAZOLE. [Concomitant]
     Active Substance: OMEPRAZOLE
     Indication: GASTROINTESTINAL DISORDER PROPHYLAXIS
     Dates: start: 20160914, end: 20160918
  78. SOLU-MEDROL [Concomitant]
     Active Substance: METHYLPREDNISOLONE SODIUM SUCCINATE
     Dates: start: 20190625, end: 20190629
  79. SOLU-MEDROL [Concomitant]
     Active Substance: METHYLPREDNISOLONE SODIUM SUCCINATE
     Dates: start: 20111003, end: 20111007
  80. KALDYUM [Concomitant]
     Active Substance: POTASSIUM CHLORIDE
     Dates: start: 20140127, end: 20140131
  81. OCRELIZUMAB. [Suspect]
     Active Substance: OCRELIZUMAB
     Dosage: OLE-WEEK 144
     Route: 042
     Dates: start: 20160810, end: 20160810
  82. RIVOTRIL [Concomitant]
     Active Substance: CLONAZEPAM
     Route: 048
     Dates: start: 2009
  83. BISULEPIN [Concomitant]
     Active Substance: BISULEPIN
     Dosage: PRE-MEDICATION.
     Dates: start: 20130422
  84. PARACETAMOL [Concomitant]
     Active Substance: ACETAMINOPHEN
     Dosage: PRE-MEDICATION. WEEK 2
     Dates: start: 20111219
  85. PARACETAMOL [Concomitant]
     Active Substance: ACETAMINOPHEN
     Dosage: PRE-MEDICATION. WEEK 24
     Dates: start: 20120521
  86. METHYLPREDNISOLONE. [Concomitant]
     Active Substance: METHYLPREDNISOLONE
     Dosage: PRE-MEDICATION.
     Dates: start: 20120521, end: 20120521
  87. PREDNISONE. [Concomitant]
     Active Substance: PREDNISONE
     Dates: start: 20110620, end: 20110620
  88. PREDNISONE. [Concomitant]
     Active Substance: PREDNISONE
     Dates: start: 20110624, end: 20110625
  89. PREDNISONE. [Concomitant]
     Active Substance: PREDNISONE
     Dates: start: 20111012, end: 20111012
  90. AFLAMIL [Concomitant]
     Active Substance: ACECLOFENAC
     Indication: INTERVERTEBRAL DISC PROTRUSION
     Dates: start: 20121212
  91. PARALEN (SLOVAKIA) [Concomitant]
     Dosage: WEEK 48 SUBSEQUENT DOSE ON 22/APR/2013 WEEK 72, 04/NOV/2013 OLE-WEEK 0, 18/NOV/2013 OLE-WEEK 2, 23/A
     Dates: start: 20121105
  92. MESOCAIN [Concomitant]
     Dosage: 2 AMPULE
     Dates: start: 20150604, end: 20150609
  93. MESOCAIN [Concomitant]
     Dosage: 2 AMPULE
     Dates: start: 20170322, end: 20170326
  94. MESOCAIN [Concomitant]
     Dates: start: 20150511, end: 20150511
  95. ALMIRAL [Concomitant]
     Active Substance: DICLOFENAC SODIUM
     Indication: INTERVERTEBRAL DISC PROTRUSION
     Dates: start: 20150604, end: 20150609
  96. OMEPRAZOLE. [Concomitant]
     Active Substance: OMEPRAZOLE
     Dates: start: 20141125, end: 20141127
  97. LYRICA [Concomitant]
     Active Substance: PREGABALIN
     Dates: start: 20190629
  98. MYDOCALM [Concomitant]
     Indication: BACK PAIN
     Dates: start: 20170322, end: 20170403
  99. ZALDIAR [Concomitant]
     Active Substance: ACETAMINOPHEN\TRAMADOL HYDROCHLORIDE
     Indication: BACK PAIN
     Dates: start: 20170403, end: 20180528
  100. FAMOSAN [Concomitant]
     Active Substance: FAMOTIDINE
     Dates: start: 20200702, end: 20200706
  101. CELASKON [Concomitant]
     Indication: VIRAL INFECTION
     Dates: start: 20160222, end: 20160226
  102. PLACEBO [Suspect]
     Active Substance: UNSPECIFIED INGREDIENT
     Indication: RELAPSING-REMITTING MULTIPLE SCLEROSIS
     Route: 042
     Dates: start: 20111206, end: 20111206
  103. PLACEBO [Suspect]
     Active Substance: UNSPECIFIED INGREDIENT
     Route: 042
     Dates: start: 20121105, end: 20121105
  104. INTERFERON BETA-1A [Suspect]
     Active Substance: INTERFERON BETA-1A
     Indication: RELAPSING-REMITTING MULTIPLE SCLEROSIS
     Dosage: FOR WEEK 1 AND 2
     Route: 058
     Dates: start: 20111206
  105. OCRELIZUMAB. [Suspect]
     Active Substance: OCRELIZUMAB
     Dosage: OLE-WEEK 96
     Route: 042
     Dates: start: 20150902, end: 20150902
  106. OCRELIZUMAB. [Suspect]
     Active Substance: OCRELIZUMAB
     Dosage: OLE-WEEK 192
     Route: 042
     Dates: start: 20170714, end: 20170714
  107. PARACETAMOL [Concomitant]
     Active Substance: ACETAMINOPHEN
     Dosage: PRE-MEDICATION. BASELINE (WEEK 1)
     Dates: start: 20111206
  108. PARACETAMOL [Concomitant]
     Active Substance: ACETAMINOPHEN
     Dosage: PRE-MEDICATION.
     Dates: start: 20130422
  109. METHYLPREDNISOLONE. [Concomitant]
     Active Substance: METHYLPREDNISOLONE
     Dosage: SOLUMEDROL
     Dates: start: 20110613, end: 20110617
  110. PREDNISONE. [Concomitant]
     Active Substance: PREDNISONE
     Dates: start: 20110216, end: 20110217
  111. BELOGENT [Concomitant]
     Active Substance: BETAMETHASONE DIPROPIONATE\GENTAMICIN SULFATE
     Dates: start: 20120521, end: 20180528
  112. MESOCAIN [Concomitant]
     Dosage: 2 AMPULE
     Dates: start: 20151130, end: 20151207
  113. GUAJACURAN [Concomitant]
     Dosage: 1 AMPULE
     Dates: start: 20150604, end: 20150609
  114. OMEPRAZOLE. [Concomitant]
     Active Substance: OMEPRAZOLE
     Dates: start: 20180124, end: 20180128
  115. SOLU-MEDROL [Concomitant]
     Active Substance: METHYLPREDNISOLONE SODIUM SUCCINATE
     Dates: start: 20140127, end: 20140131
  116. ELMETACIN [Concomitant]
     Dates: start: 20121212, end: 20180528
  117. PLACEBO [Suspect]
     Active Substance: UNSPECIFIED INGREDIENT
     Route: 042
     Dates: start: 20130422, end: 20130422
  118. INTERFERON BETA-1A [Suspect]
     Active Substance: INTERFERON BETA-1A
     Dosage: DURING WEEKS 3 AND 4: 22 MICROGRAM INJECTION 3 TIMES PER WEEK;?FROM THE 5TH WEEK: 44 MICROGRAM INJEC
     Route: 058
     Dates: end: 20130810
  119. OCRELIZUMAB. [Suspect]
     Active Substance: OCRELIZUMAB
     Dosage: OLE-WEEK 2
     Route: 042
     Dates: start: 20131118, end: 20131118
  120. OCRELIZUMAB. [Suspect]
     Active Substance: OCRELIZUMAB
     Dosage: OLE-WEEK 48
     Route: 042
     Dates: start: 20141006, end: 20141006
  121. OCRELIZUMAB. [Suspect]
     Active Substance: OCRELIZUMAB
     Dosage: OLE-WEEK 72
     Route: 042
     Dates: start: 20150323, end: 20150323
  122. RIVOTRIL [Concomitant]
     Active Substance: CLONAZEPAM
     Route: 048
     Dates: start: 2007
  123. BISULEPIN [Concomitant]
     Active Substance: BISULEPIN
     Dosage: PRE-MEDICATION.
     Dates: start: 20111219
  124. PARACETAMOL [Concomitant]
     Active Substance: ACETAMINOPHEN
     Dosage: PRE-MEDICATION.
     Dates: start: 20121105
  125. METHYLPREDNISOLONE. [Concomitant]
     Active Substance: METHYLPREDNISOLONE
     Dosage: PRE-MEDICATION.
     Dates: start: 20111219, end: 20111219
  126. PREDNISONE. [Concomitant]
     Active Substance: PREDNISONE
     Dates: start: 20111009, end: 20111009
  127. CALCIUM GLUCONICUM [Concomitant]
     Dosage: 1 AMPULES
     Dates: start: 20141119, end: 20141127
  128. MESOCAIN [Concomitant]
     Indication: INTERVERTEBRAL DISC PROTRUSION
     Dosage: 2 AMPULE
     Dates: start: 20141119, end: 20141127
  129. LYRICA [Concomitant]
     Active Substance: PREGABALIN
     Indication: BACK PAIN
     Dates: start: 20151207, end: 20170322
  130. SOLU-MEDROL [Concomitant]
     Active Substance: METHYLPREDNISOLONE SODIUM SUCCINATE
     Dates: start: 20170913, end: 20170917
  131. SOLU-MEDROL [Concomitant]
     Active Substance: METHYLPREDNISOLONE SODIUM SUCCINATE
     Dates: start: 20180124, end: 20180128
  132. SOLU-MEDROL [Concomitant]
     Active Substance: METHYLPREDNISOLONE SODIUM SUCCINATE
     Dates: start: 20110613, end: 20110617

REACTIONS (2)
  - Urinary tract infection [Recovered/Resolved]
  - Cystitis [Recovered/Resolved]

NARRATIVE: CASE EVENT DATE: 20130721
